FAERS Safety Report 7383864-1 (Version None)
Quarter: 2011Q1

REPORT INFORMATION
  Report Type: 
  Country: None (occurrence: None)
  Receive Date: 20110330
  Receipt Date: 20110323
  Transmission Date: 20110831
  Serious: Yes (Death)
  Sender: FDA-Public Use
  Company Number: JP-ASTRAZENECA-2011SE17536

PATIENT
  Age: 1 Year
  Sex: Male
  Weight: 6 kg

DRUGS (7)
  1. LASIX [Concomitant]
     Indication: CARDIAC FAILURE
     Route: 048
     Dates: start: 20080912, end: 20090806
  2. WARFARIN [Concomitant]
     Indication: THROMBOSIS PROPHYLAXIS
     Route: 048
     Dates: start: 20081006, end: 20090806
  3. BLOPRESS [Suspect]
     Indication: CARDIAC FAILURE
     Route: 048
     Dates: start: 20080926, end: 20081006
  4. BLOPRESS [Suspect]
     Route: 048
     Dates: start: 20081007, end: 20090806
  5. ALDACTONE [Concomitant]
     Indication: CARDIAC FAILURE
     Route: 048
     Dates: start: 20080912, end: 20090806
  6. INDERAL [Concomitant]
     Indication: ARRHYTHMIA
     Route: 048
     Dates: start: 20080121, end: 20090806
  7. ACETYLSALICYLIC ACID [Concomitant]
     Indication: THROMBOSIS PROPHYLAXIS
     Route: 048
     Dates: start: 20080912, end: 20090806

REACTIONS (1)
  - NECROTISING COLITIS [None]
